FAERS Safety Report 19712009 (Version 2)
Quarter: 2021Q3

REPORT INFORMATION
  Report Type: Spontaneous
  Country: PY (occurrence: PY)
  Receive Date: 20210816
  Receipt Date: 20210819
  Transmission Date: 20211014
  Serious: Yes (Other)
  Sender: FDA-Public Use
  Company Number: PY-B.I. PHARMACEUTICALS,INC./RIDGEFIELD-2021-BI-120852

PATIENT
  Age: 59 Year
  Sex: Male

DRUGS (2)
  1. TELMISARTAN. [Concomitant]
     Active Substance: TELMISARTAN
     Indication: HYPERTENSION
     Route: 065
  2. VARGATEF [Suspect]
     Active Substance: NINTEDANIB
     Indication: IDIOPATHIC PULMONARY FIBROSIS
     Dosage: 150MG/BID
     Route: 065
     Dates: start: 202003

REACTIONS (10)
  - Hypoxia [Unknown]
  - Congestive cardiomyopathy [Not Recovered/Not Resolved]
  - COVID-19 [Unknown]
  - Bronchiectasis [Not Recovered/Not Resolved]
  - Nausea [Unknown]
  - Dyspnoea exertional [Unknown]
  - Oxygen consumption increased [Unknown]
  - Pulmonary hypertension [Not Recovered/Not Resolved]
  - Idiopathic pulmonary fibrosis [Not Recovered/Not Resolved]
  - Bronchoscopic lung volume reduction [Not Recovered/Not Resolved]

NARRATIVE: CASE EVENT DATE: 202010
